FAERS Safety Report 7999175-7 (Version None)
Quarter: 2011Q4

REPORT INFORMATION
  Report Type: 
  Country: None (occurrence: None)
  Receive Date: 20111221
  Receipt Date: 20111219
  Transmission Date: 20120403
  Serious: Yes (Other)
  Sender: FDA-Public Use
  Company Number: US-PFIZER INC-2008077887

PATIENT
  Sex: Female
  Weight: 58.05 kg

DRUGS (30)
  1. CHANTIX [Suspect]
     Dosage: UNK
     Route: 048
     Dates: start: 20080901
  2. CHANTIX [Suspect]
     Dosage: 0.5 MG, 2X/DAY
     Route: 048
     Dates: start: 20080101, end: 20080101
  3. CHANTIX [Suspect]
     Dosage: 1 MG, 2X/DAY
     Dates: start: 20100601
  4. CYMBALTA [Suspect]
     Indication: DEPRESSION
     Dosage: 60 MG, UNK
  5. ALBUTEROL [Concomitant]
     Indication: EMPHYSEMA
     Dosage: UNK
     Route: 055
  6. ADVAIR DISKUS 100/50 [Concomitant]
     Indication: EMPHYSEMA
     Dosage: UNK
     Route: 055
  7. LYRICA [Concomitant]
     Indication: NEURALGIA
     Dosage: 150 MG, 2X/DAY
     Route: 048
  8. LEVOTHYROXINE SODIUM [Concomitant]
     Indication: THYROID DISORDER
     Dosage: 100 UG, 1X/DAY
     Route: 048
  9. LOVASTATIN [Concomitant]
     Indication: BLOOD CHOLESTEROL INCREASED
     Dosage: 10 MG, 1X/DAY
     Route: 048
  10. CYMBALTA [Suspect]
     Dosage: 90 MG, UNK
     Dates: start: 20080901
  11. MONTELUKAST SODIUM [Concomitant]
  12. ATROVENT [Concomitant]
     Indication: EMPHYSEMA
     Dosage: UNK
     Route: 055
  13. RANITIDINE [Concomitant]
     Indication: GASTROOESOPHAGEAL REFLUX DISEASE
     Dosage: 150 MG, 2X/DAY
     Route: 048
  14. CHANTIX [Suspect]
     Indication: SMOKING CESSATION THERAPY
     Dosage: 0.5 MG, 1X/DAY
     Route: 048
     Dates: start: 20080101, end: 20080101
  15. FLONASE [Concomitant]
     Indication: HYPERSENSITIVITY
     Route: 045
  16. KLONOPIN [Concomitant]
  17. CALCIUM [Concomitant]
  18. RIZATRIPTAN BENZOATE [Concomitant]
  19. REMERON [Concomitant]
     Indication: DEPRESSION
     Dosage: 30 MG, 1X/DAY
     Route: 048
  20. VYTORIN [Concomitant]
  21. ADVAIR DISKUS 100/50 [Concomitant]
     Indication: ASTHMA
  22. LISINOPRIL [Concomitant]
     Indication: HYPERTENSION
     Dosage: 10 MG, 1X/DAY
     Route: 048
  23. DARVOCET [Concomitant]
     Indication: INTERVERTEBRAL DISC DEGENERATION
     Dosage: 100/50
     Route: 048
  24. CHANTIX [Suspect]
     Dosage: 1 MG, 2X/DAY
     Route: 048
     Dates: start: 20080101, end: 20080101
  25. REMERON [Concomitant]
     Dosage: 45 MG, UNK
     Route: 048
     Dates: start: 20080901
  26. LEVOTHYROXINE SODIUM [Concomitant]
  27. FOSAMAX [Concomitant]
     Indication: OSTEOPENIA
     Dosage: 25 MG, 1X/DAY
     Route: 048
  28. AMLODIPINE [Concomitant]
     Indication: HYPERTENSION
     Dosage: 5 MG, 1X/DAY
     Route: 048
  29. CYMBALTA [Suspect]
     Dosage: 60 MG, UNK
  30. PRILOSEC [Concomitant]

REACTIONS (10)
  - INFLUENZA LIKE ILLNESS [None]
  - AGITATION [None]
  - SEROTONIN SYNDROME [None]
  - OROPHARYNGEAL PAIN [None]
  - COLD SWEAT [None]
  - DYSPNOEA [None]
  - NAUSEA [None]
  - FEELING ABNORMAL [None]
  - NERVOUSNESS [None]
  - ABNORMAL DREAMS [None]
